FAERS Safety Report 5299209-7 (Version None)
Quarter: 2007Q2

REPORT INFORMATION
  Report Type: 
  Country: None (occurrence: None)
  Receive Date: 20070410
  Receipt Date: 20070402
  Transmission Date: 20071010
  Serious: Yes (Hospitalization, Other)
  Sender: FDA-Public Use
  Company Number: RENA-12124

PATIENT
  Age: 81 Year
  Sex: Female
  Weight: 45.3597 kg

DRUGS (10)
  1. RENAGEL [Suspect]
     Indication: HYPERPHOSPHATAEMIA
     Dosage: 2.4 G TID PO
     Route: 048
     Dates: start: 20010101
  2. COZAAR [Concomitant]
  3. ASACOL [Concomitant]
  4. LABETALOL HYDROCHLORIDE [Concomitant]
  5. NORVASC [Concomitant]
  6. ISOSORBIDE MONONITRATE [Concomitant]
  7. HOME OXYGEN [Concomitant]
  8. ZEMPLAR [Concomitant]
  9. EPOGEN [Concomitant]
  10. SENSIPAR [Concomitant]

REACTIONS (6)
  - METASTASES TO BONE [None]
  - METASTASES TO GASTROINTESTINAL TRACT [None]
  - METASTASES TO KIDNEY [None]
  - PNEUMONIA [None]
  - PULMONARY OEDEMA [None]
  - REFUSAL OF TREATMENT BY PATIENT [None]
